FAERS Safety Report 6436895-X (Version None)
Quarter: 2009Q4

REPORT INFORMATION
  Report Type: 
  Country: None (occurrence: None)
  Receive Date: 20091109
  Receipt Date: 20091029
  Transmission Date: 20100525
  Serious: Yes (Other)
  Sender: FDA-Public Use
  Company Number: WAES 0911USA00168

PATIENT

DRUGS (6)
  1. DECADRON [Suspect]
     Indication: MULTIPLE MYELOMA
     Dosage: 20 MG/DAILY/PO ; 40 MG/DAILY/PO
     Route: 048
  2. VELCADE [Suspect]
     Indication: MULTIPLE MYELOMA
     Dosage: IV
     Route: 042
  3. DOXIL [Suspect]
     Indication: MULTIPLE MYELOMA
     Dosage: IV
     Route: 042
  4. ACYCLOVIR [Concomitant]
  5. ASPIRIN [Concomitant]
  6. HEPARIN [Concomitant]

REACTIONS (15)
  - ANAEMIA [None]
  - BLOOD GLUCOSE INCREASED [None]
  - CONSTIPATION [None]
  - DEEP VEIN THROMBOSIS [None]
  - FATIGUE [None]
  - GASTROINTESTINAL DISORDER [None]
  - INFECTION [None]
  - MOOD ALTERED [None]
  - MUSCULAR WEAKNESS [None]
  - NEUTROPENIA [None]
  - PALMAR-PLANTAR ERYTHRODYSAESTHESIA SYNDROME [None]
  - PERIPHERAL SENSORY NEUROPATHY [None]
  - PNEUMONIA [None]
  - PULMONARY EMBOLISM [None]
  - THROMBOCYTOPENIA [None]
